FAERS Safety Report 8463573-8 (Version None)
Quarter: 2012Q2

REPORT INFORMATION
  Report Type: 
  Country: None (occurrence: None)
  Receive Date: 20120625
  Receipt Date: 20120612
  Transmission Date: 20120825
  Serious: Yes (Hospitalization)
  Sender: FDA-Public Use
  Company Number: DE-MEDIMMUNE-MEDI-0015250

PATIENT
  Age: 4 Month
  Sex: Male

DRUGS (5)
  1. SYNAGIS [Suspect]
     Indication: ANTIVIRAL PROPHYLAXIS
     Route: 030
     Dates: start: 20111209, end: 20111209
  2. SYNAGIS [Suspect]
     Route: 030
     Dates: start: 20120405, end: 20120405
  3. SYNAGIS [Suspect]
     Route: 030
     Dates: start: 20120301, end: 20120301
  4. SYNAGIS [Suspect]
     Route: 030
     Dates: start: 20120104, end: 20120105
  5. SYNAGIS [Suspect]
     Route: 030
     Dates: start: 20120131, end: 20120131

REACTIONS (2)
  - BRONCHITIS [None]
  - RESPIRATORY SYNCYTIAL VIRUS INFECTION [None]
